FAERS Safety Report 8747440 (Version 3)
Quarter: 2012Q4

REPORT INFORMATION
  Report Type: Report from Study
  Country: BR (occurrence: BR)
  Receive Date: 20120827
  Receipt Date: 20120928
  Transmission Date: 20130627
  Serious: Yes (Hospitalization)
  Sender: FDA-Public Use
  Company Number: BR-CELGENEUS-020-C5013-12081495

PATIENT
  Age: 65 Year
  Sex: Female
  Weight: 53.6 kg

DRUGS (4)
  1. CC-5013 [Suspect]
     Indication: CLL
     Dosage: 2.5 Milligram
     Route: 048
     Dates: start: 20120806, end: 20120814
  2. CC-5013 [Suspect]
     Dosage: 1.25 Milligram
     Route: 048
     Dates: start: 20120827
  3. MORPHINE [Concomitant]
     Indication: PAIN
     Dosage: 2 Milligram
     Route: 041
     Dates: start: 20120813, end: 20120819
  4. DIPIRONE [Concomitant]
     Indication: NAUSEA
     Dosage: 10 Milligram
     Route: 041
     Dates: start: 20120816

REACTIONS (1)
  - Splenic haemorrhage [Recovered/Resolved]
